FAERS Safety Report 9021178 (Version 1)
Quarter: 2013Q1

REPORT INFORMATION
  Report Type: Spontaneous
  Country: US (occurrence: US)
  Receive Date: 20130119
  Receipt Date: 20130119
  Transmission Date: 20140127
  Serious: No
  Sender: FDA-Public Use
  Company Number: US-ALLERGAN-1203086US

PATIENT
  Age: 64 Year
  Sex: Female

DRUGS (9)
  1. BOTOX COSMETIC [Suspect]
     Indication: SKIN WRINKLING
     Dosage: 50 UNITS, SINGLE
     Route: 030
     Dates: start: 201202, end: 201202
  2. BOTOX COSMETIC [Suspect]
     Indication: SKIN WRINKLING
  3. BOTOX COSMETIC [Suspect]
     Indication: SKIN WRINKLING
  4. CHEMOTHERAPY [Concomitant]
     Indication: NEOPLASM MALIGNANT
     Dosage: UNK
     Dates: start: 20120214
  5. ZOCOR [Concomitant]
     Indication: HYPERCHOLESTEROLAEMIA
     Dosage: UNK
  6. RAMIPRIL [Concomitant]
     Indication: HYPERTENSION
     Dosage: UNK
  7. COREG [Concomitant]
     Indication: CARDIAC DISORDER
     Dosage: UNK
  8. EFFEXOR                            /01233801/ [Concomitant]
     Indication: PRODUCT USED FOR UNKNOWN INDICATION
     Dosage: UNK
  9. SYSTANE BALANCE [Concomitant]
     Indication: DRY EYE
     Dosage: 2 GTT, BID
     Route: 047

REACTIONS (1)
  - Dry eye [Unknown]
